FAERS Safety Report 7911767-X (Version None)
Quarter: 2011Q4

REPORT INFORMATION
  Report Type: 
  Country: None (occurrence: None)
  Receive Date: 20111114
  Receipt Date: 20111114
  Transmission Date: 20120403
  Serious: Yes (Other)
  Sender: FDA-Public Use
  Company Number: None

PATIENT
  Age: 25 Year
  Sex: Female
  Weight: 65.77 kg

DRUGS (1)
  1. CYMBALTA [Suspect]
     Indication: ANXIETY
     Dosage: ONE CAPSULE
     Route: 048

REACTIONS (4)
  - FEELING DRUNK [None]
  - PARAESTHESIA [None]
  - DIZZINESS [None]
  - DRUG WITHDRAWAL SYNDROME [None]
